FAERS Safety Report 4664946-1 (Version None)
Quarter: 2005Q2

REPORT INFORMATION
  Report Type: 
  Country: None (occurrence: None)
  Receive Date: 20050517
  Receipt Date: 20050504
  Transmission Date: 20051028
  Serious: Yes (Life-Threatening, Hospitalization, Disabling)
  Sender: FDA-Public Use
  Company Number: GBT040201219

PATIENT
  Age: 72 Year
  Sex: Male
  Weight: 72 kg

DRUGS (9)
  1. GEMCITABINE HYDROCHLORIDE-IV (GEMCITABINE) [Suspect]
     Indication: TRANSITIONAL CELL CARCINOMA
     Dosage: 1720 MG
     Dates: start: 20040204
  2. PACLITAXEL [Suspect]
     Indication: TRANSITIONAL CELL CARCINOMA
     Dosage: 138 MG
     Dates: start: 20040204
  3. CISPLATIN [Suspect]
     Indication: TRANSITIONAL CELL CARCINOMA
     Dosage: 120 MG
     Dates: start: 20040204
  4. ONDANSETRON [Concomitant]
  5. CHLORPHENAMINE [Concomitant]
  6. DEXAMETHASONE [Concomitant]
  7. METOCLOPRAMIDE [Concomitant]
  8. ASPIRIN [Concomitant]
  9. LANSOPRAZOLE [Concomitant]

REACTIONS (5)
  - BLINDNESS UNILATERAL [None]
  - HAEMOGLOBIN DECREASED [None]
  - NEUTROPENIC SEPSIS [None]
  - THROMBOCYTHAEMIA [None]
  - THROMBOSIS [None]
